FAERS Safety Report 12604840 (Version 1)
Quarter: 2016Q3

REPORT INFORMATION
  Report Type: Spontaneous
  Country: ES (occurrence: ES)
  Receive Date: 20160728
  Receipt Date: 20160728
  Transmission Date: 20161109
  Serious: Yes (Hospitalization, Other)
  Sender: FDA-Public Use
  Company Number: ES-ALLERGAN-1663819US

PATIENT
  Age: 70 Year
  Sex: Male

DRUGS (4)
  1. TAMSULOSIN [Concomitant]
     Active Substance: TAMSULOSIN
     Indication: PRODUCT USED FOR UNKNOWN INDICATION
     Dosage: 0.4 MG, QD
     Route: 048
     Dates: start: 20140515
  2. DECAPEPTYL LP 22.5MG [Suspect]
     Active Substance: TRIPTORELIN PAMOATE
     Indication: PROSTATE CANCER
     Dosage: 22.5 MG, UNK
     Route: 030
     Dates: start: 20141030, end: 20141030
  3. TORASEMIDA ALTER [Concomitant]
     Indication: HYPERTENSION
     Dosage: 10 MG, QD
     Route: 048
     Dates: start: 20140515
  4. BICALUTAMIDA [Concomitant]
     Indication: PROSTATE CANCER
     Dosage: 50 MG, QD
     Route: 048
     Dates: start: 20140928

REACTIONS (2)
  - Pituitary tumour benign [Recovering/Resolving]
  - Pituitary haemorrhage [Recovered/Resolved]

NARRATIVE: CASE EVENT DATE: 20141030
